FAERS Safety Report 4519416-8 (Version None)
Quarter: 2004Q4

REPORT INFORMATION
  Report Type: 
  Country: None (occurrence: None)
  Receive Date: 20041202
  Receipt Date: 20041124
  Transmission Date: 20050328
  Serious: Yes (Hospitalization)
  Sender: FDA-Public Use
  Company Number: 2004097777

PATIENT
  Sex: Female

DRUGS (1)
  1. SORTIS (ATORVASTATIN) [Suspect]
     Indication: ILL-DEFINED DISORDER
     Dosage: ORAL
     Route: 048
     Dates: start: 19970101, end: 20041101

REACTIONS (4)
  - CALCIFICATION PANCREATIC DUCT [None]
  - PANCREATIC PSEUDOCYST [None]
  - PANCREATITIS ACUTE [None]
  - URINARY TRACT DISORDER [None]
